FAERS Safety Report 9421124 (Version 2)
Quarter: 2014Q1

REPORT INFORMATION
  Report Type: Spontaneous
  Country: FR (occurrence: FR)
  Receive Date: 20130725
  Receipt Date: 20140328
  Transmission Date: 20141002
  Serious: Yes (Hospitalization)
  Sender: FDA-Public Use
  Company Number: PHHY2013FR077276

PATIENT
  Sex: Female

DRUGS (12)
  1. COTAREG [Suspect]
     Dosage: UNK UKN, UNK
     Route: 048
  2. BISOPROLOL [Suspect]
     Dosage: UNK UKN, UNK
     Route: 048
  3. RAMIPRIL [Suspect]
     Dosage: UNK UKN, UNK
     Route: 048
  4. LAMALINE [Suspect]
     Dosage: UNK UKN, UNK
     Route: 048
  5. TAHOR [Suspect]
     Dosage: 10 MG, UNK
     Route: 048
  6. PARIET [Suspect]
     Dosage: 20 MG, UNK
     Route: 048
  7. DUOPLAVIN [Suspect]
     Dosage: UNK UKN, UNK
     Route: 048
  8. REVLIMID [Suspect]
     Dosage: UNK UKN, UNK
     Route: 048
     Dates: start: 201209, end: 201212
  9. DEXAMETHASONE [Concomitant]
     Dosage: UNK UKN, UNK
     Dates: start: 201209, end: 201212
  10. BIPERIDYSFLASH [Concomitant]
  11. GAVISCON [Concomitant]
  12. SPASFON [Concomitant]

REACTIONS (3)
  - Pancreatitis [Recovered/Resolved]
  - Abdominal pain upper [Unknown]
  - Vomiting [Unknown]
